FAERS Safety Report 20410716 (Version 19)
Quarter: 2025Q4

REPORT INFORMATION
  Report Type: Report from Study
  Country: IN (occurrence: IN)
  Receive Date: 20220201
  Receipt Date: 20251218
  Transmission Date: 20260117
  Serious: Yes (Hospitalization, Other)
  Sender: NOVARTIS
  Company Number: IN-NOVARTISPH-NVSC2020IN305953

PATIENT
  Age: 63 Year
  Sex: Female

DRUGS (28)
  1. RIBOCICLIB [Suspect]
     Active Substance: RIBOCICLIB
     Indication: Breast cancer metastatic
     Dosage: 600 MG, QD
     Route: 048
     Dates: start: 20190807, end: 20200628
  2. RIBOCICLIB [Suspect]
     Active Substance: RIBOCICLIB
     Dosage: 600 MG (400MG OD/600MG OD ALTERNATIVE DAYS)
     Route: 048
     Dates: start: 20190816, end: 20200628
  3. RIBOCICLIB [Suspect]
     Active Substance: RIBOCICLIB
     Dosage: 600 MG (400MG OD/600MG OD ALTERNATIVE DAYS)
     Route: 065
     Dates: start: 20200629
  4. RIBOCICLIB [Suspect]
     Active Substance: RIBOCICLIB
     Dosage: 600 MG (400 MG QD ALTERNATIVE WITH 600 MG QD)
     Route: 065
     Dates: start: 20200629, end: 20201103
  5. RIBOCICLIB [Suspect]
     Active Substance: RIBOCICLIB
     Dosage: 600 MG (400MG OD/600MG OD ALTERNATIVE DAYS) (400 MG QD ALTERNATIVE WITH 600 MG QD)
     Route: 065
     Dates: start: 20201117
  6. RIBOCICLIB [Suspect]
     Active Substance: RIBOCICLIB
     Dosage: 600 MG (400MG OD/600MG OD ALTERNATIVE DAYS) (400 MG QD ALTERNATIVE WITH 600 MG QD)
     Route: 065
     Dates: start: 20210123
  7. RIBOCICLIB [Suspect]
     Active Substance: RIBOCICLIB
     Dosage: 600MG(400MG OD/600MG OD ALTERNATIVE DAYS)
     Route: 065
     Dates: start: 20210220
  8. RIBOCICLIB [Suspect]
     Active Substance: RIBOCICLIB
     Dosage: 600MG(400MG OD/600MG OD ALTERNATIVE DAYS)
     Route: 065
     Dates: start: 20210510
  9. RIBOCICLIB [Suspect]
     Active Substance: RIBOCICLIB
     Dosage: 600MG(400MG OD/600MG OD ALTERNATIVE DAYS)
     Route: 065
     Dates: start: 20210701
  10. RIBOCICLIB [Suspect]
     Active Substance: RIBOCICLIB
     Dosage: 600MG(400MG OD/600MG OD ALTERNATIVE DAYS)
     Route: 065
     Dates: start: 20211001
  11. RIBOCICLIB [Suspect]
     Active Substance: RIBOCICLIB
     Dosage: 600MG(400MG OD/600MG OD ALTERNATIVE DAYS)
     Route: 065
     Dates: start: 20211127
  12. RIBOCICLIB [Suspect]
     Active Substance: RIBOCICLIB
     Dosage: 600 MG (400MG OD/600MG OD ALTERNATIVE DAYS)
     Route: 065
     Dates: start: 20220202
  13. RIBOCICLIB [Suspect]
     Active Substance: RIBOCICLIB
     Dosage: 600 MG (400MG OD/600 MG OD ALT DAYS)
     Route: 048
     Dates: start: 20220303
  14. RIBOCICLIB [Suspect]
     Active Substance: RIBOCICLIB
     Dosage: 600 MG (400MG OD/600MG OD ALT DAYS)
     Route: 065
     Dates: start: 20220331
  15. RIBOCICLIB [Suspect]
     Active Substance: RIBOCICLIB
     Dosage: 600 MG (400MG OD/600MG OD ALT DAYS)
     Route: 065
     Dates: start: 20221007
  16. RIBOCICLIB [Suspect]
     Active Substance: RIBOCICLIB
     Dosage: 600MG, OTHER (400MG OD/600MG OD ALT DAYS)
     Route: 065
     Dates: start: 20221021
  17. RIBOCICLIB [Suspect]
     Active Substance: RIBOCICLIB
     Dosage: 600MG, OTHER (400MG OD/600MG OD ALT DAYS)
     Route: 065
     Dates: start: 20221124
  18. RIBOCICLIB [Suspect]
     Active Substance: RIBOCICLIB
     Dosage: 600 MG, OTHER (400MG OD/600MG OD ALT DAYS)
     Route: 065
     Dates: start: 20221224
  19. RIBOCICLIB [Suspect]
     Active Substance: RIBOCICLIB
     Dosage: 600MG, (400MG OD/ 600MG OD ALTERNATIVE DAYS)
     Route: 065
     Dates: start: 20230311
  20. RIBOCICLIB [Suspect]
     Active Substance: RIBOCICLIB
     Dosage: 600MG, (400MG OD/ 600MG OD ALTERNATIVE DAYS)
     Route: 048
     Dates: start: 20230325
  21. RIBOCICLIB [Suspect]
     Active Substance: RIBOCICLIB
     Dosage: 600MG, (400MG OD/ 600MG OD ALTERNATIVE DAYS)
     Route: 048
     Dates: start: 20230424
  22. RIBOCICLIB [Suspect]
     Active Substance: RIBOCICLIB
     Dosage: 600 MG, OTHER (400MG OD/600MG OD ALT DAYS)
     Route: 048
     Dates: start: 20230620
  23. RIBOCICLIB [Suspect]
     Active Substance: RIBOCICLIB
     Dosage: 600 MG, OTHER (400MG OD/600MG OD ALT DAYS)
     Route: 048
     Dates: start: 20230718
  24. RIBOCICLIB [Suspect]
     Active Substance: RIBOCICLIB
     Dosage: 600MG, OTHER (400MG OD/600MG OD ALT DAYS)
     Route: 048
     Dates: start: 20230816
  25. RIBOCICLIB [Suspect]
     Active Substance: RIBOCICLIB
     Dosage: 200 MG, QOD (2-0-0/3-0-0 ALTERNATE DAYS)
     Route: 065
  26. RIBOCICLIB [Suspect]
     Active Substance: RIBOCICLIB
     Dosage: 600 MG, (400 MG OD AND 600 MG OD ON ALTERNATE DAYS)
     Route: 048
  27. RIBOCICLIB [Suspect]
     Active Substance: RIBOCICLIB
     Dosage: 600 MG, (400 MG OD AND 600 MG OD ON ALTERNATE DAYS)
     Route: 048
     Dates: start: 20251201
  28. LETRONAT [Concomitant]
     Indication: Breast cancer metastatic
     Dosage: 2.5 MG, QD
     Route: 048

REACTIONS (18)
  - COVID-19 [Recovered/Resolved]
  - Febrile neutropenia [Recovered/Resolved]
  - Hypercalcaemia [Recovered/Resolved]
  - Acute kidney injury [Recovered/Resolved]
  - Urinary tract infection [Recovered/Resolved]
  - Diabetes mellitus [Recovered/Resolved]
  - Back pain [Recovered/Resolved]
  - Diarrhoea [Unknown]
  - Cough [Unknown]
  - Headache [Unknown]
  - Dizziness [Unknown]
  - Back pain [Unknown]
  - Nausea [Unknown]
  - Pruritus [Unknown]
  - Product use issue [Unknown]
  - Haemoglobin abnormal [Unknown]
  - White blood cell count abnormal [Unknown]
  - Monocyte percentage increased [Unknown]

NARRATIVE: CASE EVENT DATE: 20200629
